FAERS Safety Report 14455001 (Version 3)
Quarter: 2018Q3

REPORT INFORMATION
  Report Type: Spontaneous
  Country: US (occurrence: US)
  Receive Date: 20180129
  Receipt Date: 20180905
  Transmission Date: 20181010
  Serious: Yes (Other)
  Sender: FDA-Public Use
  Company Number: US-DSJP-DSU-2017-145726

PATIENT

DRUGS (1)
  1. BENICAR HCT [Suspect]
     Active Substance: HYDROCHLOROTHIAZIDE\OLMESARTAN MEDOXOMIL
     Indication: HYPERTENSION
     Dosage: 40?25 MG, QD
     Route: 048
     Dates: start: 20080103, end: 20150427

REACTIONS (5)
  - Drug administration error [Unknown]
  - Gallbladder polyp [Unknown]
  - Syncope [Unknown]
  - Sprue-like enteropathy [Recovering/Resolving]
  - Polyp [Unknown]

NARRATIVE: CASE EVENT DATE: 20080109
